FAERS Safety Report 21205438 (Version 1)
Quarter: 2022Q3

REPORT INFORMATION
  Report Type: Spontaneous
  Country: JP (occurrence: JP)
  Receive Date: 20220812
  Receipt Date: 20220812
  Transmission Date: 20221026
  Serious: Yes (Other)
  Sender: FDA-Public Use
  Company Number: JP-ADVANZ PHARMA-202208004932

PATIENT

DRUGS (1)
  1. ZONISAMIDE [Suspect]
     Active Substance: ZONISAMIDE
     Indication: Parkinson^s disease
     Dosage: UNK (EXCEGRAN)
     Route: 048

REACTIONS (3)
  - Cardiac valve disease [Unknown]
  - Therapeutic response unexpected [Unknown]
  - Off label use [Unknown]
